FAERS Safety Report 9986290 (Version 1)
Quarter: 2014Q1

REPORT INFORMATION
  Report Type: Report from Study
  Country: US (occurrence: US)
  Receive Date: 20140307
  Receipt Date: 20140307
  Transmission Date: 20141002
  Serious: No
  Sender: FDA-Public Use
  Company Number: US-ABBVIE-13P-163-1086198-00

PATIENT
  Age: 35 Year
  Sex: Male

DRUGS (5)
  1. HUMIRA [Suspect]
     Indication: COLITIS ULCERATIVE
     Dosage: LOADING DOSE
     Dates: start: 20130405, end: 20130405
  2. HUMIRA [Suspect]
     Dates: start: 20130419
  3. OXYCODONE [Concomitant]
     Indication: INTERVERTEBRAL DISC PROTRUSION
  4. TYLENOL [Concomitant]
     Indication: INTERVERTEBRAL DISC PROTRUSION
  5. KETOCONAZOLE [Concomitant]
     Indication: FUNGAL SKIN INFECTION
     Dosage: PILL, TWICE A YEAR

REACTIONS (4)
  - Fatigue [Not Recovered/Not Resolved]
  - Fatigue [Not Recovered/Not Resolved]
  - Oropharyngeal pain [Not Recovered/Not Resolved]
  - Nasal congestion [Not Recovered/Not Resolved]
